FAERS Safety Report 15611223 (Version 1)
Quarter: 2018Q4

REPORT INFORMATION
  Report Type: Spontaneous
  Country: US (occurrence: US)
  Receive Date: 20181113
  Receipt Date: 20181113
  Transmission Date: 20190205
  Serious: Yes (Hospitalization, Other)
  Sender: FDA-Public Use
  Company Number: US-NAPPMUNDI-USA-2018-0144878

PATIENT
  Sex: Female

DRUGS (5)
  1. MORPHINE SULFATE EXTENDED-RELEASE TABLETS (RHODES 74-769, 74-862) [Suspect]
     Active Substance: MORPHINE SULFATE
     Indication: PAIN IN EXTREMITY
     Dosage: 60 MG, UNK
     Route: 048
  2. MORPHINE SULFATE EXTENDED-RELEASE TABLETS (RHODES 74-769, 74-862) [Suspect]
     Active Substance: MORPHINE SULFATE
     Indication: PAIN
     Dosage: 60 MG, UNK
     Route: 048
     Dates: start: 2015
  3. MS CONTIN [Suspect]
     Active Substance: MORPHINE SULFATE
     Indication: PAIN IN EXTREMITY
     Dosage: 60 MG, TID
     Route: 048
     Dates: start: 2015
  4. MS CONTIN [Suspect]
     Active Substance: MORPHINE SULFATE
     Indication: PAIN
     Dosage: REDUCING 30 MG EVERY 3 MONTHS
     Route: 048
  5. MS CONTIN [Suspect]
     Active Substance: MORPHINE SULFATE
     Dosage: 100 MG, TID
     Route: 048
     Dates: start: 2003, end: 2015

REACTIONS (9)
  - Overdose [Recovered/Resolved]
  - Arthropod sting [Unknown]
  - Eczema [Not Recovered/Not Resolved]
  - Dyspnoea [Unknown]
  - Unevaluable event [Not Recovered/Not Resolved]
  - Foreign body in reproductive tract [Unknown]
  - Hospitalisation [Unknown]
  - Arthropod bite [Unknown]
  - Somnolence [Recovered/Resolved]

NARRATIVE: CASE EVENT DATE: 2015
